FAERS Safety Report 4530182-2 (Version None)
Quarter: 2004Q4

REPORT INFORMATION
  Report Type: 
  Country: None (occurrence: None)
  Receive Date: 20041215
  Receipt Date: 20041215
  Transmission Date: 20050328
  Serious: Yes (Hospitalization)
  Sender: FDA-Public Use
  Company Number: None

PATIENT
  Age: 67 Year
  Sex: Male
  Weight: 56 kg

DRUGS (10)
  1. WARFARIN  2MG  DUPONT [Suspect]
     Indication: PERIPHERAL VASCULAR DISORDER
     Dosage: 1MG/2MG  MWF + ROW  ORAL
     Route: 048
     Dates: start: 20030301, end: 20041018
  2. EPOGEN [Concomitant]
  3. NEUPOGEN [Concomitant]
  4. IMODIUM A-D [Concomitant]
  5. METHADONE [Concomitant]
  6. LOSARTAN [Concomitant]
  7. COUMADIN [Concomitant]
  8. ALENDRONATE SODIUM [Concomitant]
  9. FINASTERIDE [Concomitant]
  10. TAMSULOSIN [Concomitant]

REACTIONS (3)
  - ABDOMINAL PAIN [None]
  - INTERNATIONAL NORMALISED RATIO INCREASED [None]
  - LOWER GASTROINTESTINAL HAEMORRHAGE [None]
